FAERS Safety Report 6526463-3 (Version None)
Quarter: 2009Q4

REPORT INFORMATION
  Report Type: 
  Country: None (occurrence: None)
  Receive Date: 20091229
  Receipt Date: 20091222
  Transmission Date: 20100525
  Serious: No
  Sender: FDA-Public Use
  Company Number: 20097811

PATIENT
  Sex: Male

DRUGS (1)
  1. LIORESAL [Suspect]
     Indication: MUSCLE SPASTICITY
     Dosage: MCG, DAILY, INTRATHECAL

REACTIONS (4)
  - CSF GLUCOSE INCREASED [None]
  - CSF WHITE BLOOD CELL COUNT INCREASED [None]
  - IMPAIRED HEALING [None]
  - PSEUDOMONAS INFECTION [None]
